FAERS Safety Report 12336060 (Version 1)
Quarter: 2016Q2

REPORT INFORMATION
  Report Type: Spontaneous
  Country: IT (occurrence: IT)
  Receive Date: 20160505
  Receipt Date: 20160505
  Transmission Date: 20160815
  Serious: Yes (Hospitalization)
  Sender: FDA-Public Use
  Company Number: IT-HOSPIRA-3270721

PATIENT
  Age: 49 Year
  Sex: Male
  Weight: 81 kg

DRUGS (9)
  1. DEXAMETHASONE. [Concomitant]
     Active Substance: DEXAMETHASONE
     Indication: CHEMOTHERAPY
     Dosage: IN SALINE 100 ML IN 15 MINUTES
     Route: 042
     Dates: start: 20160316, end: 20160330
  2. GLUCOSE [Concomitant]
     Active Substance: DEXTROSE
     Indication: CHEMOTHERAPY
     Dosage: IN 10 MINUTES
  3. DELTACORTENE [Concomitant]
     Active Substance: PREDNISONE
     Indication: PRODUCT USED FOR UNKNOWN INDICATION
     Dosage: DAYS 2 AND 3
  4. LEVOFOLENE [Concomitant]
     Active Substance: LEVOLEUCOVORIN CALCIUM
     Indication: CHEMOTHERAPY
     Dosage: IN GLUCOSATE 5% 250 ML IN 2 HOURS SIMULTANEOUSLY WITH OXALIPLATIN
  5. OXALIPLATIN. [Suspect]
     Active Substance: OXALIPLATIN
     Indication: COLON CANCER
     Route: 042
     Dates: start: 20160316, end: 20160330
  6. FLUOROURACIL. [Suspect]
     Active Substance: FLUOROURACIL
     Indication: COLON CANCER
     Route: 042
     Dates: start: 20160316, end: 20160330
  7. GLUCOSE [Concomitant]
     Active Substance: DEXTROSE
     Indication: CHEMOTHERAPY
     Dosage: IN 30 MINUTES
  8. ZOFRAN [Concomitant]
     Active Substance: ONDANSETRON HYDROCHLORIDE
     Indication: CHEMOTHERAPY
     Dosage: IN SALINE 100 ML IN 15 MINUTES
     Route: 042
     Dates: start: 20160316, end: 20160330
  9. FLUOROURACIL. [Suspect]
     Active Substance: FLUOROURACIL
     Indication: COLON CANCER
     Route: 040
     Dates: start: 20160316, end: 20160330

REACTIONS (3)
  - Atrial fibrillation [Recovered/Resolved with Sequelae]
  - Electrocardiogram ST segment elevation [Recovered/Resolved with Sequelae]
  - Ventricular hypokinesia [Recovered/Resolved with Sequelae]

NARRATIVE: CASE EVENT DATE: 20160401
